FAERS Safety Report 7451533-5 (Version None)
Quarter: 2011Q2

REPORT INFORMATION
  Report Type: 
  Country: None (occurrence: None)
  Receive Date: 20110502
  Receipt Date: 20110428
  Transmission Date: 20111010
  Serious: Yes (Death, Other)
  Sender: FDA-Public Use
  Company Number: PHHY2011JP36189

PATIENT
  Sex: Female

DRUGS (8)
  1. PRAMIPEXOLE DIHYDROCHLORIDE [Concomitant]
     Indication: PARKINSON'S DISEASE
     Dosage: 1 MG, DAILY
     Route: 048
     Dates: start: 20090214, end: 20091103
  2. REQUIP [Concomitant]
     Indication: PARKINSON'S DISEASE
     Dosage: 4 MG, DAILY
     Route: 048
     Dates: start: 20091104, end: 20091216
  3. MADOPAR [Concomitant]
     Dosage: 300 MG, DAILY
     Route: 048
  4. ENTACAPONE [Suspect]
     Indication: PARKINSON'S DISEASE
     Dosage: 300 MG, DAILY
     Route: 048
     Dates: start: 20080619
  5. MADOPAR [Concomitant]
     Indication: PARKINSON'S DISEASE
     Dosage: 400 MG, DAILY
     Route: 048
     Dates: start: 20070719
  6. SYMMETREL [Concomitant]
     Indication: PARKINSON'S DISEASE
     Dosage: 100 MG, DAILY
     Route: 048
     Dates: start: 19970214
  7. PERMAX [Concomitant]
     Indication: PARKINSON'S DISEASE
     Dosage: 100 UG, DAILY
     Route: 048
     Dates: start: 20040417, end: 20091122
  8. SELEGILINE HCL [Concomitant]
     Indication: PARKINSON'S DISEASE
     Dosage: 2.5 MG, DAILY
     Route: 048
     Dates: start: 20071117

REACTIONS (3)
  - DEATH [None]
  - BLOOD CREATININE INCREASED [None]
  - BLOOD UREA INCREASED [None]
